FAERS Safety Report 7963815 (Version 2)
Quarter: 2012Q4

REPORT INFORMATION
  Report Type: 
  Country: US (occurrence: US)
  Receive Date: 20110527
  Receipt Date: 20121023
  Transmission Date: 20130627
  Serious: Yes (Life-Threatening, Hospitalization)
  Sender: FDA-Public Use
  Company Number: US-MYLANLABS-2011S1009990

PATIENT
  Age: 13 Year
  Sex: Female

DRUGS (19)
  1. AMITRIPTYLINE HYDROCHLORIDE [Suspect]
     Indication: OVERDOSE
     Dosage: unknown quantity of 150mg tablets
     Route: 048
  2. LIPID EMULSION [Suspect]
     Indication: CARDIAC ARREST
     Dosage: 20% lipid emulsion; given over 3min, 5min apart; then 0.25 mg/kg/min infusion
     Route: 040
  3. LIPID EMULSION [Suspect]
     Indication: CARDIAC ARREST
     Dosage: continuous infusion of 0.25 mg/kg/min for 30min
     Route: 041
  4. ETOMIDATE [Concomitant]
     Indication: ENDOTRACHEAL INTUBATION
  5. VECURONIUM BROMIDE [Concomitant]
     Indication: ENDOTRACHEAL INTUBATION
     Dosage: received in emergency department
  6. MIDAZOLAM [Concomitant]
     Indication: SEDATIVE THERAPY
     Dosage: infusion of 2 mg/h; plus 4mg supplemental; started in ICU
  7. FENTANYL [Concomitant]
     Indication: ANALGESIC THERAPY
     Dosage: infusion of 50 microg/hr; started in ICU
  8. SODIUM BICARBONATE [Concomitant]
     Indication: TOXICITY TO VARIOUS AGENTS
     Dosage: 150mEq/L sodium bicarb, 40mEq/L potassium in 5% dextrose at 125mL/h; Started 7h after ingestion
  9. POTASSIUM [Concomitant]
     Indication: TOXICITY TO VARIOUS AGENTS
     Dosage: 150mEq/L sodium bicarb, 40mEq/L potassium in 5% dextrose at 125mL/h; Started 7h after ingestion
  10. MIDAZOLAM [Concomitant]
     Indication: SEDATIVE THERAPY
     Dosage: 4mg total supplemental doses; later received 10mg during CPR; Received throughout 1st night
  11. LORAZEPAM [Concomitant]
     Indication: CONVULSION
     Dosage: 20mg total; received additional doses during CPR
     Route: 042
  12. EPINEPHRINE [Concomitant]
     Indication: CARDIAC ARREST
     Dosage: Bolus doses; Received during CPR
  13. MAGNESIUM SULFATE [Concomitant]
     Indication: CARDIAC ARREST
     Dosage: 2g total; Received during CPR
  14. LIDOCAINE [Concomitant]
     Indication: CARDIAC ARREST
     Dosage: Received during CPR
     Route: 042
  15. MIDAZOLAM [Concomitant]
     Indication: CARDIAC ARREST
     Dosage: 10mg total; Received during CPR
     Route: 042
  16. LORAZEPAM [Concomitant]
     Indication: CARDIAC ARREST
     Dosage: additional doses
  17. PHENOBARBITAL [Concomitant]
     Indication: CARDIAC ARREST
     Dosage: Administered almost simultaneously with lipid emulsion
  18. NOREPINEPHRINE [Concomitant]
     Indication: CARDIAC ARREST
     Dosage: infusion; received after cardiac arrest
  19. DOPAMINE [Concomitant]
     Indication: CARDIAC ARREST
     Dosage: infusion; received after cardiac arrest

REACTIONS (9)
  - Overdose [Recovered/Resolved]
  - Convulsion [Recovered/Resolved]
  - Cardiac arrest [Recovered/Resolved]
  - Coma [Recovered/Resolved]
  - Pancreatitis [Recovered/Resolved]
  - Thrombophlebitis [Recovered/Resolved]
  - Torsade de pointes [Recovered/Resolved]
  - Respiratory depression [Recovered/Resolved]
  - Acute respiratory distress syndrome [Recovered/Resolved]
